FAERS Safety Report 8759613 (Version 1)
Quarter: 2012Q4

REPORT INFORMATION
  Report Type: 
  Country: US (occurrence: US)
  Receive Date: 20120829
  Receipt Date: 20120829
  Transmission Date: 20130627
  Serious: No
  Sender: FDA-Public Use
  Company Number: US-BAYER-2012-087034

PATIENT
  Sex: Female

DRUGS (1)
  1. CLIMARA PRO [Suspect]
     Indication: HOT FLUSH
     Dosage: UNK
     Route: 062
     Dates: start: 20120815, end: 20120818

REACTIONS (10)
  - Headache [None]
  - Dizziness [None]
  - Chest pain [None]
  - Palpitations [None]
  - Dyspnoea [None]
  - Nausea [None]
  - Visual impairment [None]
  - Disturbance in attention [None]
  - Poor quality sleep [None]
  - Hot flush [None]
